FAERS Safety Report 15276258 (Version 1)
Quarter: 2018Q3

REPORT INFORMATION
  Report Type: Report from Study
  Country: None (occurrence: US)
  Receive Date: 20180814
  Receipt Date: 20180814
  Transmission Date: 20181010
  Serious: Yes (Other)
  Sender: FDA-Public Use
  Company Number: US-ABBVIE-17K-163-2202614-00

PATIENT
  Age: 48 Year
  Sex: Female

DRUGS (1)
  1. HUMIRA [Suspect]
     Active Substance: ADALIMUMAB
     Indication: RHEUMATOID ARTHRITIS
     Route: 058
     Dates: start: 201308

REACTIONS (9)
  - Nodule [Not Recovered/Not Resolved]
  - Joint instability [Not Recovered/Not Resolved]
  - Mobility decreased [Unknown]
  - Rheumatoid arthritis [Recovered/Resolved]
  - Gait disturbance [Unknown]
  - Pain [Unknown]
  - Discomfort [Unknown]
  - Rheumatoid arthritis [Recovered/Resolved]
  - Neuralgia [Not Recovered/Not Resolved]

NARRATIVE: CASE EVENT DATE: 20171220
